FAERS Safety Report 19674559 (Version 1)
Quarter: 2021Q3

REPORT INFORMATION
  Report Type: Spontaneous
  Country: US (occurrence: US)
  Receive Date: 20210809
  Receipt Date: 20210809
  Transmission Date: 20211014
  Serious: Yes (Other)
  Sender: FDA-Public Use
  Company Number: None

PATIENT
  Age: 22 Year
  Sex: Female

DRUGS (3)
  1. TEMODAR [Suspect]
     Active Substance: TEMOZOLOMIDE
     Route: 048
     Dates: start: 20210610, end: 20210625
  2. TEMODAR [Concomitant]
     Active Substance: TEMOZOLOMIDE
     Dates: start: 20210610, end: 20210625
  3. TEMODAR [Suspect]
     Active Substance: TEMOZOLOMIDE
     Route: 048
     Dates: start: 20210610, end: 20210625

REACTIONS (4)
  - Therapy interrupted [None]
  - Thrombocytopenia [None]
  - Neutropenia [None]
  - Anaemia [None]

NARRATIVE: CASE EVENT DATE: 20210625
